FAERS Safety Report 12425856 (Version 1)
Quarter: 2016Q2

REPORT INFORMATION
  Report Type: Spontaneous
  Country: TW (occurrence: TW)
  Receive Date: 20160601
  Receipt Date: 20160601
  Transmission Date: 20160815
  Serious: No
  Sender: FDA-Public Use
  Company Number: TW-PROMETHEUS LABORATORIES-2016PL000036

PATIENT

DRUGS (1)
  1. PROLEUKIN [Suspect]
     Active Substance: ALDESLEUKIN
     Indication: PRODUCT USED FOR UNKNOWN INDICATION
     Dosage: 9000000 IU, SEE NARRATIVE
     Route: 065

REACTIONS (2)
  - Pyrexia [Unknown]
  - Feeling cold [Unknown]
